FAERS Safety Report 7103280-7 (Version None)
Quarter: 2010Q4

REPORT INFORMATION
  Report Type: 
  Country: None (occurrence: None)
  Receive Date: 20101115
  Receipt Date: 20101108
  Transmission Date: 20110411
  Serious: Yes (Life-Threatening, Hospitalization, Other)
  Sender: FDA-Public Use
  Company Number: DE-BRISTOL-MYERS SQUIBB COMPANY-14923551

PATIENT
  Age: 66 Year
  Sex: Male
  Weight: 66 kg

DRUGS (3)
  1. CETUXIMAB [Suspect]
     Indication: HEAD AND NECK CANCER
     Dosage: CETUXIMAB 5MG/ML; RECENT INF 24DEC09 (5TH INF).
     Route: 042
     Dates: start: 20091126, end: 20091224
  2. CISPLATIN [Suspect]
     Indication: HEAD AND NECK CANCER
     Dosage: RECENT INF 18DEC09 (2ND INF).
     Route: 042
     Dates: start: 20091126, end: 20091218
  3. FLUOROURACIL [Suspect]
     Indication: HEAD AND NECK CANCER
     Dosage: CONTINUOUS INFUSION FROM DAY 1 TO DAY 4 OF CYCLE; RECENT INF 21DEC09 (8TH INF).
     Route: 042
     Dates: start: 20091126, end: 20091221

REACTIONS (13)
  - ADRENAL INSUFFICIENCY [None]
  - ASTHENIA [None]
  - BLOOD CORTISOL DECREASED [None]
  - BLOOD LACTATE DEHYDROGENASE INCREASED [None]
  - BLOOD POTASSIUM DECREASED [None]
  - BLOOD SODIUM DECREASED [None]
  - DECREASED APPETITE [None]
  - HAEMOGLOBIN DECREASED [None]
  - HYPOXIA [None]
  - KLEBSIELLA INFECTION [None]
  - PETECHIAE [None]
  - PNEUMONIA [None]
  - SKIN HAEMORRHAGE [None]
